FAERS Safety Report 5931451-1 (Version None)
Quarter: 2008Q4

REPORT INFORMATION
  Report Type: 
  Country: None (occurrence: None)
  Receive Date: 20081027
  Receipt Date: 20081027
  Transmission Date: 20090506
  Serious: Yes (Hospitalization)
  Sender: FDA-Public Use
  Company Number: A0753639A

PATIENT
  Age: 69 Year
  Sex: Male
  Weight: 109.1 kg

DRUGS (2)
  1. ALLI [Suspect]
     Indication: WEIGHT LOSS DIET
     Route: 048
     Dates: start: 20080601
  2. CYMBALTA [Concomitant]
     Indication: DEPRESSION

REACTIONS (1)
  - PANCREATITIS [None]
